FAERS Safety Report 12297073 (Version 1)
Quarter: 2016Q2

REPORT INFORMATION
  Report Type: Spontaneous
  Country: US (occurrence: US)
  Receive Date: 20160422
  Receipt Date: 20160422
  Transmission Date: 20160815
  Serious: Yes (Hospitalization, Other)
  Sender: FDA-Public Use
  Company Number: ADR-2015-01447

PATIENT
  Age: 67 Year
  Sex: Female

DRUGS (3)
  1. BACLOFEN. [Suspect]
     Active Substance: BACLOFEN
     Dosage: 101.35MCG/DAY
     Route: 037
  2. DROPERIDOL. [Suspect]
     Active Substance: DROPERIDOL
     Dosage: 13.513MCG/DAY
     Route: 037
  3. FENTANYL. [Suspect]
     Active Substance: FENTANYL
     Dosage: 4.504MG/DAY
     Route: 037

REACTIONS (4)
  - Altered state of consciousness [Unknown]
  - Dizziness [Unknown]
  - Nausea [Unknown]
  - No therapeutic response [Unknown]
